FAERS Safety Report 5275466-8 (Version None)
Quarter: 2007Q1

REPORT INFORMATION
  Report Type: 
  Country: None (occurrence: None)
  Receive Date: 20070326
  Receipt Date: 20070316
  Transmission Date: 20070707
  Serious: Yes (Hospitalization)
  Sender: FDA-Public Use
  Company Number: HQWYE122119MAR07

PATIENT
  Sex: Male
  Weight: 84.1 kg

DRUGS (21)
  1. RAPAMUNE [Suspect]
     Indication: PROPHYLAXIS AGAINST TRANSPLANT REJECTION
     Route: 048
     Dates: start: 20040821
  2. PREDNISONE [Concomitant]
     Indication: PROPHYLAXIS AGAINST TRANSPLANT REJECTION
     Route: 048
     Dates: start: 20041111
  3. TENORMIN [Concomitant]
     Indication: HYPERTENSION
     Route: 048
     Dates: start: 20041215
  4. LISINOPRIL [Concomitant]
     Indication: HYPERTENSION
     Route: 048
     Dates: start: 20050906
  5. BACTRIM [Concomitant]
     Indication: ANTI-INFECTIVE THERAPY
     Route: 048
     Dates: start: 20000307
  6. LANTUS [Concomitant]
     Indication: DIABETES MELLITUS
     Dosage: 8 UNIT EVERY 1 DAY
     Route: 058
     Dates: start: 20070120
  7. NOVOLOG [Concomitant]
     Indication: DIABETES MELLITUS
     Dosage: 10 UNIT EVERY 1 DAY
     Route: 058
     Dates: start: 20061227
  8. AVANDIA [Concomitant]
     Indication: DIABETES MELLITUS
     Route: 048
     Dates: start: 20050715
  9. ESOMEPRAZOLE MAGNESIUM [Concomitant]
     Indication: GASTROINTESTINAL DISORDER
     Route: 048
     Dates: start: 20041112
  10. LIPITOR [Concomitant]
     Indication: METABOLIC DISORDER
     Route: 048
     Dates: start: 20060206
  11. TUMS [Concomitant]
     Indication: METABOLIC DISORDER
     Route: 048
     Dates: start: 20000614
  12. ACETYLSALICYLIC ACID SRT [Concomitant]
     Indication: ANTIPLATELET THERAPY
     Route: 048
     Dates: start: 20041111
  13. CLOPIDOGREL [Concomitant]
     Indication: ANTIPLATELET THERAPY
     Route: 048
     Dates: start: 20040206
  14. CLARITIN [Concomitant]
     Dosage: 1 TABLET PRN
     Route: 048
     Dates: start: 20041004
  15. FLOMAX [Concomitant]
     Route: 048
     Dates: start: 20010831
  16. BUSPAR [Concomitant]
     Indication: MENTAL DISORDER
     Route: 048
     Dates: start: 20060905
  17. CYMBALTA [Concomitant]
     Indication: MENTAL DISORDER
     Route: 048
     Dates: start: 20051227
  18. CLONAZEPAM [Concomitant]
     Dosage: 0.5/0.25 MG IN AM/PM
     Route: 048
     Dates: start: 20050715
  19. PERCOCET [Concomitant]
     Dosage: 1 TABLET TID PRN
     Route: 048
     Dates: start: 20020529
  20. AMBIEN [Concomitant]
     Dosage: 10 MG HS PRN
     Route: 048
     Dates: start: 20030303
  21. CELLCEPT [Concomitant]
     Indication: PROPHYLAXIS AGAINST TRANSPLANT REJECTION
     Route: 048
     Dates: start: 20041121

REACTIONS (1)
  - UMBILICAL HERNIA [None]
